FAERS Safety Report 5713319-9 (Version None)
Quarter: 2008Q2

REPORT INFORMATION
  Report Type: 
  Country: None (occurrence: None)
  Receive Date: 20080418
  Receipt Date: 20080402
  Transmission Date: 20081010
  Serious: Yes (Other)
  Sender: FDA-Public Use
  Company Number: SPV1-2008-00757

PATIENT
  Age: 5 Year
  Sex: Male

DRUGS (1)
  1. VYVANSE [Suspect]
     Dosage: 1X/DAY;QD, ORAL
     Route: 048
     Dates: start: 20071001, end: 20080331

REACTIONS (2)
  - LIVER FUNCTION TEST ABNORMAL [None]
  - OFF LABEL USE [None]
